FAERS Safety Report 13504879 (Version 1)
Quarter: 2017Q2

REPORT INFORMATION
  Report Type: Spontaneous
  Country: TR (occurrence: TR)
  Receive Date: 20170502
  Receipt Date: 20170502
  Transmission Date: 20170830
  Serious: Yes (Hospitalization)
  Sender: FDA-Public Use
  Company Number: TR-TEVA-764413ROM

PATIENT
  Age: 21 Year
  Sex: Male
  Weight: 82 kg

DRUGS (3)
  1. SMOFLIPID [Suspect]
     Active Substance: FISH OIL\MEDIUM-CHAIN TRIGLYCERIDES\OLIVE OIL\SOYBEAN OIL
     Dosage: 0.25 ML/KG/MIN FOR ONE HOUR
     Route: 041
  2. SMOFLIPID [Suspect]
     Active Substance: FISH OIL\MEDIUM-CHAIN TRIGLYCERIDES\OLIVE OIL\SOYBEAN OIL
     Dosage: 1.5 ML/KG BOLUS OF 20% (20 %, 200 MG/ML)
     Route: 040
  3. METOPROLOL. [Suspect]
     Active Substance: METOPROLOL
     Indication: SUICIDE ATTEMPT
     Dosage: 1000 MG
     Route: 048

REACTIONS (9)
  - Confusional state [Recovered/Resolved]
  - Hypotension [Recovered/Resolved]
  - Hyperlipidaemia [Recovered/Resolved]
  - Cardiac disorder [Recovered/Resolved]
  - Lactic acidosis [Recovered/Resolved]
  - Sinus bradycardia [Recovered/Resolved]
  - Pleural effusion [Recovered/Resolved]
  - Intentional overdose [Recovered/Resolved]
  - Suicide attempt [Recovered/Resolved]
